FAERS Safety Report 21360227 (Version 1)
Quarter: 2022Q3

REPORT INFORMATION
  Report Type: Spontaneous
  Country: US (occurrence: None)
  Receive Date: 20220921
  Receipt Date: 20220921
  Transmission Date: 20221026
  Serious: No
  Sender: FDA-Public Use
  Company Number: 2022A297571

PATIENT
  Age: 25959 Day
  Sex: Male

DRUGS (1)
  1. CRESTOR [Suspect]
     Active Substance: ROSUVASTATIN CALCIUM
     Indication: Blood cholesterol increased
     Dosage: DAILY
     Route: 048
     Dates: start: 20220519, end: 20220519

REACTIONS (2)
  - Cardiac disorder [Unknown]
  - Asthenia [Recovered/Resolved]

NARRATIVE: CASE EVENT DATE: 20220519
